FAERS Safety Report 7746256-9 (Version None)
Quarter: 2011Q3

REPORT INFORMATION
  Report Type: 
  Country: None (occurrence: None)
  Receive Date: 20110913
  Receipt Date: 20110905
  Transmission Date: 20111222
  Serious: Yes (Other)
  Sender: FDA-Public Use
  Company Number: IT-BRISTOL-MYERS SQUIBB COMPANY-16044950

PATIENT
  Age: 62 Year
  Sex: Female

DRUGS (6)
  1. BACTRIM [Concomitant]
     Route: 048
     Dates: start: 20101014, end: 20110830
  2. DARBEPOETIN ALFA [Concomitant]
     Route: 058
     Dates: start: 20110216, end: 20110830
  3. ACYCLOVIR [Concomitant]
     Route: 048
     Dates: start: 20110530, end: 20110830
  4. OMEPRAZOLE [Concomitant]
     Route: 048
     Dates: start: 20101014, end: 20110830
  5. ALLOPURINOL [Concomitant]
     Route: 048
     Dates: start: 20110530, end: 20110830
  6. SPRYCEL [Suspect]
     Indication: ACUTE LYMPHOCYTIC LEUKAEMIA
     Route: 048
     Dates: start: 20110530, end: 20110819

REACTIONS (1)
  - ENTEROCOLITIS HAEMORRHAGIC [None]
